FAERS Safety Report 11553592 (Version 2)
Quarter: 2015Q4

REPORT INFORMATION
  Report Type: Report from Study
  Country: PL (occurrence: PL)
  Receive Date: 20150925
  Receipt Date: 20151009
  Transmission Date: 20160304
  Serious: No
  Sender: FDA-Public Use
  Company Number: PL-ROCHE-1638357

PATIENT
  Age: 62 Year
  Sex: Male
  Weight: 90 kg

DRUGS (11)
  1. DEXAMETHASONE. [Suspect]
     Active Substance: DEXAMETHASONE
     Indication: CHRONIC LYMPHOCYTIC LEUKAEMIA
     Route: 042
     Dates: start: 20150630, end: 20150816
  2. POLPRAZOL [Concomitant]
     Active Substance: OMEPRAZOLE
  3. HEVIRAN [Concomitant]
     Active Substance: ACYCLOVIR
  4. ENCORTON [Concomitant]
     Active Substance: PREDNISONE
  5. KALIPOZ [Concomitant]
     Active Substance: POTASSIUM CHLORIDE
  6. MILURIT [Concomitant]
     Active Substance: ALLOPURINOL
  7. HEPATIL [Concomitant]
  8. MABTHERA [Suspect]
     Active Substance: RITUXIMAB
     Indication: CHRONIC LYMPHOCYTIC LEUKAEMIA
     Route: 042
     Dates: start: 20150630, end: 20150811
  9. CYCLONAMINE [Concomitant]
     Active Substance: ETHAMSYLATE
  10. CYCLOPHOSPHAMIDE. [Suspect]
     Active Substance: CYCLOPHOSPHAMIDE
     Indication: CHRONIC LYMPHOCYTIC LEUKAEMIA
     Route: 065
  11. PABI-DEXAMETHASON [Concomitant]

REACTIONS (1)
  - Visual impairment [Unknown]

NARRATIVE: CASE EVENT DATE: 20150811
